FAERS Safety Report 17286894 (Version 3)
Quarter: 2021Q1

REPORT INFORMATION
  Report Type: Report from Study
  Country: US (occurrence: US)
  Receive Date: 20200120
  Receipt Date: 20210318
  Transmission Date: 20210419
  Serious: Yes (Hospitalization)
  Sender: FDA-Public Use
  Company Number: US-SA-2019SA353277

PATIENT
  Age: 42 Year
  Sex: Female

DRUGS (4)
  1. ALEMTUZUMAB [Suspect]
     Active Substance: ALEMTUZUMAB
     Indication: MULTIPLE SCLEROSIS
     Dosage: 12 MG, QD
     Route: 041
     Dates: start: 20191218, end: 20191220
  2. IBUPROFEN. [Concomitant]
     Active Substance: IBUPROFEN
     Indication: OSTEOARTHRITIS
  3. ALEMTUZUMAB [Suspect]
     Active Substance: ALEMTUZUMAB
     Dosage: 12 MG, QD
     Route: 041
     Dates: start: 20181210, end: 20181214
  4. IBUPROFEN. [Concomitant]
     Active Substance: IBUPROFEN
     Indication: HEADACHE
     Route: 065

REACTIONS (15)
  - Dry mouth [Unknown]
  - Pain [Recovered/Resolved]
  - Pyrexia [Recovered/Resolved]
  - Depressed mood [Not Recovered/Not Resolved]
  - Dyspnoea [Unknown]
  - Heart rate increased [Unknown]
  - Fatigue [Unknown]
  - Burning sensation [Unknown]
  - Blood pressure increased [Unknown]
  - Headache [Unknown]
  - Adverse event [Unknown]
  - Chest discomfort [Unknown]
  - Asthenia [Unknown]
  - Dizziness [Unknown]
  - Disorganised speech [Not Recovered/Not Resolved]

NARRATIVE: CASE EVENT DATE: 201912
